FAERS Safety Report 8972092 (Version 2)
Quarter: 2013Q3

REPORT INFORMATION
  Report Type: Report from Study
  Country: CA (occurrence: CA)
  Receive Date: 20121218
  Receipt Date: 20130911
  Transmission Date: 20140515
  Serious: No
  Sender: FDA-Public Use
  Company Number: CA-JNJFOC-20121114002

PATIENT
  Age: 72 Year
  Sex: Female
  Weight: 72 kg

DRUGS (1)
  1. REMICADE [Suspect]
     Indication: CROHN^S DISEASE
     Route: 042

REACTIONS (7)
  - Herpes zoster [Unknown]
  - Hypersensitivity [Unknown]
  - Infection [Recovered/Resolved]
  - Limb injury [Recovered/Resolved]
  - Fall [Recovered/Resolved]
  - Contusion [Recovered/Resolved]
  - Periorbital contusion [Recovered/Resolved]
